FAERS Safety Report 20751354 (Version 1)
Quarter: 2022Q2

REPORT INFORMATION
  Report Type: Spontaneous
  Country: US (occurrence: US)
  Receive Date: 20220426
  Receipt Date: 20220426
  Transmission Date: 20220721
  Serious: No
  Sender: FDA-Public Use
  Company Number: US-PFIZER INC-2021709559

PATIENT
  Age: 85 Year
  Sex: Female
  Weight: 66.68 kg

DRUGS (1)
  1. TAPAZOLE [Suspect]
     Active Substance: METHIMAZOLE
     Indication: Hyperthyroidism
     Dosage: 10 MG, TAKES HALF A PILL IN THE MORNING AND HALF A PILL IN THE EVENING

REACTIONS (2)
  - Dental caries [Unknown]
  - Off label use [Unknown]

NARRATIVE: CASE EVENT DATE: 20110101
